FAERS Safety Report 17375233 (Version 3)
Quarter: 2020Q2

REPORT INFORMATION
  Report Type: Report from Study
  Country: CO (occurrence: CO)
  Receive Date: 20200205
  Receipt Date: 20200401
  Transmission Date: 20200713
  Serious: Yes (Hospitalization)
  Sender: FDA-Public Use
  Company Number: NVSC2020CO028904

PATIENT
  Sex: Female
  Weight: 74 kg

DRUGS (1)
  1. TASIGNA [Suspect]
     Active Substance: NILOTINIB
     Indication: CHRONIC MYELOID LEUKAEMIA
     Dosage: 400 MG, Q12H (EVERY 12 HOURS)
     Route: 048
     Dates: start: 2011

REACTIONS (10)
  - Product dose omission [Unknown]
  - White blood cell count increased [Recovered/Resolved]
  - Chronic myeloid leukaemia recurrent [Recovered/Resolved]
  - Chronic myeloid leukaemia [Recovered/Resolved]
  - Headache [Recovered/Resolved]
  - Feeling abnormal [Recovered/Resolved]
  - Pyrexia [Recovered/Resolved]
  - Myalgia [Recovered/Resolved]
  - Splenomegaly [Recovered/Resolved]
  - Vomiting [Recovered/Resolved]
